FAERS Safety Report 17035297 (Version 1)
Quarter: 2019Q4

REPORT INFORMATION
  Report Type: Spontaneous
  Country: GB (occurrence: GB)
  Receive Date: 20191115
  Receipt Date: 20191115
  Transmission Date: 20200122
  Serious: Yes (Other)
  Sender: FDA-Public Use
  Company Number: GB-GLENMARK PHARMACEUTICALS-2019GMK044199

PATIENT

DRUGS (2)
  1. PRAMIPEXOLE DIHYDROCHLORIDE. [Suspect]
     Active Substance: PRAMIPEXOLE DIHYDROCHLORIDE
     Indication: RESTLESS LEGS SYNDROME
     Dosage: UNK
     Route: 065
  2. PRAMIPEXOLE DIHYDROCHLORIDE. [Suspect]
     Active Substance: PRAMIPEXOLE DIHYDROCHLORIDE
     Dosage: UNK (HIGH DOSE)
     Route: 065

REACTIONS (8)
  - Depression [Unknown]
  - Loss of personal independence in daily activities [Unknown]
  - Withdrawal syndrome [Unknown]
  - Pain [Unknown]
  - Gambling disorder [Unknown]
  - Drug ineffective [Unknown]
  - Suicidal ideation [Unknown]
  - Reading disorder [Unknown]
